FAERS Safety Report 25182264 (Version 1)
Quarter: 2025Q2

REPORT INFORMATION
  Report Type: Spontaneous
  Country: US (occurrence: US)
  Receive Date: 20250410
  Receipt Date: 20250410
  Transmission Date: 20250717
  Serious: No
  Sender: KINIKSA PHARMACEUTICALS
  Company Number: US-Kiniksa Pharmaceuticals Ltd.-2024KPU000723

PATIENT
  Age: 73 Year
  Sex: Female

DRUGS (2)
  1. ARCALYST [Suspect]
     Active Substance: RILONACEPT
     Indication: Pericarditis
     Route: 058
  2. COVID vaccination [Concomitant]
     Indication: COVID-19 prophylaxis
     Dates: start: 20240501

REACTIONS (4)
  - Injection site pruritus [Recovered/Resolved with Sequelae]
  - Pruritus [Recovered/Resolved]
  - Tongue discomfort [Recovered/Resolved with Sequelae]
  - Hypersensitivity [Recovered/Resolved]

NARRATIVE: CASE EVENT DATE: 20240701
